FAERS Safety Report 7682208-5 (Version None)
Quarter: 2011Q3

REPORT INFORMATION
  Report Type: 
  Country: None (occurrence: None)
  Receive Date: 20110815
  Receipt Date: 20110810
  Transmission Date: 20111222
  Serious: No
  Sender: FDA-Public Use
  Company Number: US-PFIZER INC-2011170371

PATIENT
  Sex: Female
  Weight: 61.678 kg

DRUGS (4)
  1. METHYLPHENIDATE [Concomitant]
     Indication: ATTENTION DEFICIT/HYPERACTIVITY DISORDER
     Dosage: 20 MG, 2X/DAY
     Route: 048
  2. IMITREX [Concomitant]
     Indication: MIGRAINE
     Dosage: 100 MG, AS NEEDED
     Route: 048
  3. PRISTIQ [Suspect]
     Indication: DEPRESSION
     Dosage: 50 MG, DAILY
     Route: 048
     Dates: start: 20110101, end: 20110725
  4. PROTONIX [Concomitant]
     Indication: GASTRIC ULCER
     Dosage: 40 MG, 2X/DAY
     Route: 048

REACTIONS (3)
  - DIARRHOEA [None]
  - BALANCE DISORDER [None]
  - DIZZINESS [None]
